FAERS Safety Report 5354597-8 (Version None)
Quarter: 2007Q2

REPORT INFORMATION
  Report Type: 
  Country: None (occurrence: None)
  Receive Date: 20070611
  Receipt Date: 20070524
  Transmission Date: 20071010
  Serious: Yes (Death, Life-Threatening)
  Sender: FDA-Public Use
  Company Number: 2007SP010114

PATIENT
  Age: 48 Year
  Sex: Male
  Weight: 48 kg

DRUGS (25)
  1. TEMODAL [Suspect]
     Indication: NEOPLASM RECURRENCE
     Dosage: SEE IMAGE
     Route: 048
     Dates: start: 20050509, end: 20060908
  2. TEMODAL [Suspect]
     Indication: OLIGODENDROGLIOMA
     Dosage: SEE IMAGE
     Route: 048
     Dates: start: 20050509, end: 20060908
  3. TEMODAL [Suspect]
     Indication: NEOPLASM RECURRENCE
     Dosage: SEE IMAGE
     Route: 048
     Dates: start: 20061127, end: 20061201
  4. TEMODAL [Suspect]
     Indication: OLIGODENDROGLIOMA
     Dosage: SEE IMAGE
     Route: 048
     Dates: start: 20061127, end: 20061201
  5. TEMODAL [Suspect]
     Indication: NEOPLASM RECURRENCE
     Dosage: SEE IMAGE
     Route: 048
     Dates: start: 20070115, end: 20070119
  6. TEMODAL [Suspect]
     Indication: OLIGODENDROGLIOMA
     Dosage: SEE IMAGE
     Route: 048
     Dates: start: 20070115, end: 20070119
  7. TEMODAL [Suspect]
     Indication: NEOPLASM RECURRENCE
     Dosage: SEE IMAGE
     Route: 048
     Dates: start: 20070226, end: 20070302
  8. TEMODAL [Suspect]
     Indication: OLIGODENDROGLIOMA
     Dosage: SEE IMAGE
     Route: 048
     Dates: start: 20070226, end: 20070302
  9. BAKTAR [Concomitant]
  10. ZOFRAN [Concomitant]
  11. PRIMPERAN INJ [Concomitant]
  12. LENDORMIN D [Concomitant]
  13. EXCEGRAN [Concomitant]
  14. CEPHADOL [Concomitant]
  15. MERISLON [Concomitant]
  16. FOIPAN [Concomitant]
  17. GASTER D [Concomitant]
  18. ALOSENN [Concomitant]
  19. PURSENNID [Concomitant]
  20. CLARITHROMYCIN [Concomitant]
  21. FERO-GRADUMET [Concomitant]
  22. CLARITHROMYCIN [Concomitant]
  23. CEFAMEZIN [Concomitant]
  24. FIRSTCIN [Concomitant]
  25. PENTCILLIN [Concomitant]

REACTIONS (5)
  - BLOOD CHLORIDE DECREASED [None]
  - BLOOD GLUCOSE INCREASED [None]
  - BLOOD SODIUM DECREASED [None]
  - PLATELET COUNT DECREASED [None]
  - WHITE BLOOD CELL COUNT DECREASED [None]
